FAERS Safety Report 25778734 (Version 1)
Quarter: 2025Q3

REPORT INFORMATION
  Report Type: Spontaneous
  Country: US (occurrence: None)
  Receive Date: 20250908
  Receipt Date: 20250908
  Transmission Date: 20251020
  Serious: Yes (Life-Threatening, Hospitalization)
  Sender: FDA-CTU
  Company Number: None

PATIENT
  Age: 76 Year
  Sex: Male
  Weight: 99 kg

DRUGS (6)
  1. HYDRALAZINE [Suspect]
     Active Substance: HYDRALAZINE HYDROCHLORIDE
     Indication: Blood pressure measurement
     Route: 048
  2. METOPROLOL [Concomitant]
     Active Substance: METOPROLOL
  3. ATORVASTATIN [Concomitant]
     Active Substance: ATORVASTATIN
  4. AMLODIPINE [Concomitant]
     Active Substance: AMLODIPINE BESYLATE
  5. ALBUTEROL [Concomitant]
     Active Substance: ALBUTEROL
  6. B12 [Concomitant]

REACTIONS (6)
  - Urostomy [None]
  - Post procedural haemorrhage [None]
  - Therapy cessation [None]
  - Vision blurred [None]
  - Abdominal pain upper [None]
  - Renal vasculitis [None]

NARRATIVE: CASE EVENT DATE: 20250512
